FAERS Safety Report 4502292-7 (Version None)
Quarter: 2004Q4

REPORT INFORMATION
  Report Type: 
  Country: None (occurrence: None)
  Receive Date: 20041116
  Receipt Date: 20041105
  Transmission Date: 20050328
  Serious: Yes (Hospitalization)
  Sender: FDA-Public Use
  Company Number: MX-GLAXOSMITHKLINE-A0517815B

PATIENT
  Age: 1 Year
  Sex: Male
  Weight: 11.5 kg

DRUGS (2)
  1. GW433908 [Suspect]
     Indication: HIV INFECTION
     Dosage: 11.5ML TWICE PER DAY
     Dates: start: 20040708
  2. RITONAVIR [Suspect]
     Indication: HIV INFECTION
     Dosage: 1.2ML TWICE PER DAY
     Dates: start: 20040708

REACTIONS (2)
  - CONVULSION [None]
  - GRAND MAL CONVULSION [None]
